FAERS Safety Report 7724320-8 (Version None)
Quarter: 2011Q3

REPORT INFORMATION
  Report Type: 
  Country: None (occurrence: None)
  Receive Date: 20110829
  Receipt Date: 20110819
  Transmission Date: 20111222
  Serious: Yes (Other)
  Sender: FDA-Public Use
  Company Number: ACO_26323_2011

PATIENT
  Age: 65 Year
  Sex: Male

DRUGS (3)
  1. LIPITOR [Concomitant]
  2. AVONEX [Suspect]
     Indication: PRODUCT USED FOR UNKNOWN INDICATION
  3. AMPYRA [Suspect]
     Indication: GAIT DISTURBANCE
     Dosage: 10 MG, BID
     Dates: start: 20110401

REACTIONS (2)
  - ABASIA [None]
  - FALL [None]
